FAERS Safety Report 12497058 (Version 2)
Quarter: 2016Q3

REPORT INFORMATION
  Report Type: Spontaneous
  Country: US (occurrence: US)
  Receive Date: 20160624
  Receipt Date: 20160803
  Transmission Date: 20161109
  Serious: Yes (Hospitalization)
  Sender: FDA-Public Use
  Company Number: US-GLAXOSMITHKLINE-US2016090095

PATIENT
  Age: 85 Year
  Sex: Female

DRUGS (1)
  1. PERDIEM [Suspect]
     Active Substance: SENNOSIDES
     Indication: PRODUCT USED FOR UNKNOWN INDICATION
     Dosage: UNK, 2 DAILY
     Route: 048

REACTIONS (5)
  - Incorrect drug administration duration [Unknown]
  - Gait disturbance [Unknown]
  - Cardiac disorder [Unknown]
  - Muscular weakness [Unknown]
  - Product quality issue [Unknown]
